FAERS Safety Report 6603336-9 (Version None)
Quarter: 2010Q1

REPORT INFORMATION
  Report Type: 
  Country: None (occurrence: None)
  Receive Date: 20100226
  Receipt Date: 20090223
  Transmission Date: 20100710
  Serious: No
  Sender: FDA-Public Use
  Company Number: A0766871A

PATIENT
  Age: 40 Year
  Sex: Male
  Weight: 72.8 kg

DRUGS (8)
  1. VALTREX [Suspect]
     Indication: GENITAL HERPES
     Dosage: 500MG PER DAY
     Route: 048
     Dates: start: 20030101
  2. BACLOFEN [Concomitant]
  3. VIAGRA [Concomitant]
  4. MULTI-VITAMIN [Concomitant]
  5. PROZAC [Concomitant]
  6. COPAXONE [Concomitant]
  7. FISH OIL [Concomitant]
  8. AMBIEN [Concomitant]

REACTIONS (3)
  - B-LYMPHOCYTE COUNT DECREASED [None]
  - CD4 LYMPHOCYTES DECREASED [None]
  - T-LYMPHOCYTE COUNT DECREASED [None]
